FAERS Safety Report 7899083-6 (Version None)
Quarter: 2011Q4

REPORT INFORMATION
  Report Type: 
  Country: None (occurrence: None)
  Receive Date: 20111107
  Receipt Date: 20100323
  Transmission Date: 20120403
  Serious: Yes (Hospitalization)
  Sender: FDA-Public Use
  Company Number: CA-ABBOTT-09P-028-0616129-00

PATIENT
  Sex: Female
  Weight: 81.8 kg

DRUGS (5)
  1. MAVIK [Suspect]
     Indication: ESSENTIAL HYPERTENSION
     Dates: start: 20090530, end: 20091126
  2. DIOVAN HCT [Concomitant]
     Indication: PRODUCT USED FOR UNKNOWN INDICATION
  3. PLAVIX [Concomitant]
     Indication: PRODUCT USED FOR UNKNOWN INDICATION
  4. CADUET [Concomitant]
     Indication: PRODUCT USED FOR UNKNOWN INDICATION
  5. ALTACE HCT [Concomitant]
     Indication: PRODUCT USED FOR UNKNOWN INDICATION
     Dates: start: 20091025

REACTIONS (1)
  - CEREBROVASCULAR ACCIDENT [None]
